FAERS Safety Report 5914570-5 (Version None)
Quarter: 2008Q4

REPORT INFORMATION
  Report Type: 
  Country: None (occurrence: None)
  Receive Date: 20081010
  Receipt Date: 20081003
  Transmission Date: 20090506
  Serious: No
  Sender: FDA-Public Use
  Company Number: JP-SP-2008-02377

PATIENT
  Age: 70 Year
  Sex: Female

DRUGS (1)
  1. IMMUCYST [Suspect]
     Indication: CARCINOMA IN SITU OF BLADDER
     Route: 043
     Dates: start: 20080606, end: 20080711

REACTIONS (5)
  - ARTHRALGIA [None]
  - CONJUNCTIVITIS [None]
  - PYREXIA [None]
  - PYURIA [None]
  - REITER'S SYNDROME [None]
